FAERS Safety Report 6945470-X (Version None)
Quarter: 2010Q3

REPORT INFORMATION
  Report Type: 
  Country: None (occurrence: None)
  Receive Date: 20100823
  Receipt Date: 20100805
  Transmission Date: 20110219
  Serious: Yes (Life-Threatening)
  Sender: FDA-Public Use
  Company Number: ES_TT-10_00005

PATIENT
  Age: 29 Year
  Sex: Male

DRUGS (1)
  1. DEXRAZOXANE [Suspect]
     Indication: EXTRAVASATION
     Dosage: 1 + 2: 1000MG/M2 DAY 3: 500MG/M2

REACTIONS (6)
  - ANAEMIA [None]
  - CONDITION AGGRAVATED [None]
  - HODGKIN'S DISEASE [None]
  - NAUSEA [None]
  - THROMBOCYTOPENIA [None]
  - VOMITING [None]
